FAERS Safety Report 18373072 (Version 4)
Quarter: 2022Q4

REPORT INFORMATION
  Report Type: Spontaneous
  Country: DK (occurrence: DK)
  Receive Date: 20201012
  Receipt Date: 20221118
  Transmission Date: 20230113
  Serious: Yes (Hospitalization, Disabling)
  Sender: FDA-Public Use
  Company Number: None

PATIENT
  Age: 53 Year
  Sex: Female
  Weight: 80 kg

DRUGS (2)
  1. PROVERA [Suspect]
     Active Substance: MEDROXYPROGESTERONE ACETATE
     Indication: Heavy menstrual bleeding
     Dosage: 10 MG, 1X/DAY, THIS IS THE SECOND TREATMENT
     Route: 048
     Dates: start: 20200501, end: 20200510
  2. QUETIAPINE [Concomitant]
     Active Substance: QUETIAPINE
     Indication: Tachyphrenia
     Dates: start: 20160812

REACTIONS (21)
  - Cerebral infarction [Recovered/Resolved]
  - Muscular weakness [Not Recovered/Not Resolved]
  - Hemiparesis [Recovering/Resolving]
  - Aphasia [Not Recovered/Not Resolved]
  - Cerebral thrombosis [Recovered/Resolved]
  - Speech disorder [Not Recovered/Not Resolved]
  - Coordination abnormal [Recovered/Resolved]
  - Stress [Not Recovered/Not Resolved]
  - Balance disorder [Not Recovered/Not Resolved]
  - Crying [Not Recovered/Not Resolved]
  - Musculoskeletal stiffness [Not Recovered/Not Resolved]
  - Anxiety [Not Recovered/Not Resolved]
  - Disturbance in attention [Not Recovered/Not Resolved]
  - Hypoaesthesia [Not Recovered/Not Resolved]
  - Mental fatigue [Not Recovered/Not Resolved]
  - Brain injury [Not Recovered/Not Resolved]
  - Sensory disturbance [Not Recovered/Not Resolved]
  - Neuralgia [Not Recovered/Not Resolved]
  - Hyperacusis [Not Recovered/Not Resolved]
  - Sleep disorder [Not Recovered/Not Resolved]
  - Sluggishness [Not Recovered/Not Resolved]

NARRATIVE: CASE EVENT DATE: 20200522
